FAERS Safety Report 10005067 (Version 1)
Quarter: 2014Q1

REPORT INFORMATION
  Report Type: Report from Study
  Country: BD (occurrence: BD)
  Receive Date: 20140312
  Receipt Date: 20140312
  Transmission Date: 20141002
  Serious: Yes (Death, Other)
  Sender: FDA-Public Use
  Company Number: PHHY2014BD029749

PATIENT
  Age: 89 Year
  Sex: Female

DRUGS (1)
  1. EXELON PATCH [Suspect]
     Indication: DEMENTIA
     Dosage: 9.5 MG (10 CM2), DAILY
     Route: 062
     Dates: start: 201301

REACTIONS (3)
  - Sudden death [Fatal]
  - Renal disorder [Unknown]
  - Electrolyte imbalance [Unknown]
